FAERS Safety Report 12540293 (Version 1)
Quarter: 2016Q3

REPORT INFORMATION
  Report Type: Spontaneous
  Country: US (occurrence: US)
  Receive Date: 20160708
  Receipt Date: 20160708
  Transmission Date: 20161109
  Serious: No
  Sender: FDA-Public Use
  Company Number: US-BEH-2016070431

PATIENT
  Sex: Female
  Weight: 88.44 kg

DRUGS (31)
  1. HIZENTRA [Suspect]
     Active Substance: HUMAN IMMUNOGLOBULIN G
     Indication: IMMUNODEFICIENCY COMMON VARIABLE
     Dosage: 8 G, QW
     Route: 058
  2. LIDOCAINE. [Concomitant]
     Active Substance: LIDOCAINE
  3. OPANA [Concomitant]
     Active Substance: OXYMORPHONE HYDROCHLORIDE
  4. OXYCODONE [Concomitant]
     Active Substance: OXYCODONE
  5. CYANOCOBALAMIN. [Concomitant]
     Active Substance: CYANOCOBALAMIN
  6. ACETAMINOPHEN. [Concomitant]
     Active Substance: ACETAMINOPHEN
  7. MEDROXYPROGESTERONE [Concomitant]
     Active Substance: MEDROXYPROGESTERONE
  8. VITAMIN A                          /00056001/ [Concomitant]
     Active Substance: RETINOL
  9. SELENIUM                           /00075005/ [Concomitant]
  10. GINKOBA [Concomitant]
     Active Substance: GINKGO
  11. GRAPE SEED [Concomitant]
  12. IRON [Concomitant]
     Active Substance: IRON
  13. LIDOCAINE/PRILOCAINE [Concomitant]
     Active Substance: LIDOCAINE\PRILOCAINE
  14. DETROL LA [Concomitant]
     Active Substance: TOLTERODINE TARTRATE
  15. CENTURY [Concomitant]
  16. AMITRIPTYLINE [Concomitant]
     Active Substance: AMITRIPTYLINE
  17. DIPHENHYDRAMINE. [Concomitant]
     Active Substance: DIPHENHYDRAMINE
  18. TRAZODONE [Concomitant]
     Active Substance: TRAZODONE HYDROCHLORIDE
  19. LYRICA [Concomitant]
     Active Substance: PREGABALIN
  20. ESTROGEN NOS W/METHYLTESTOSTERONE [Concomitant]
  21. SIMVASTATIN. [Concomitant]
     Active Substance: SIMVASTATIN
  22. CRANBERRY                          /01512301/ [Concomitant]
     Active Substance: CRANBERRY
  23. OMEPRAZOLE. [Concomitant]
     Active Substance: OMEPRAZOLE
  24. MECLIZINE [Concomitant]
     Active Substance: MECLIZINE HYDROCHLORIDE
  25. MAXALT [Concomitant]
     Active Substance: RIZATRIPTAN BENZOATE
  26. COUGH SYRUP [Concomitant]
     Active Substance: DEXTROMETHORPHAN HYDROBROMIDE\GUAIFENESIN
  27. EPIPEN [Concomitant]
     Active Substance: EPINEPHRINE
  28. ACYCLOVIR                          /00587301/ [Concomitant]
     Active Substance: ACYCLOVIR
  29. DILTIAZEM                          /00489702/ [Concomitant]
  30. ASPIRIN (E.C.) [Concomitant]
     Active Substance: ASPIRIN
  31. TESTOSTERONE                       /00103102/ [Concomitant]

REACTIONS (1)
  - Upper respiratory tract infection [Unknown]
